FAERS Safety Report 5345019-1 (Version None)
Quarter: 2007Q2

REPORT INFORMATION
  Report Type: 
  Country: None (occurrence: None)
  Receive Date: 20070416
  Receipt Date: 20070102
  Transmission Date: 20071010
  Serious: No
  Sender: FDA-Public Use
  Company Number: 2007SP000007

PATIENT
  Age: 80 Year
  Sex: Female
  Weight: 78.0187 kg

DRUGS (7)
  1. LUNESTA [Suspect]
     Indication: INSOMNIA
     Dosage: SEE IMAGE
     Route: 048
     Dates: start: 20061211, end: 20061212
  2. LUNESTA [Suspect]
     Indication: INSOMNIA
     Dosage: SEE IMAGE
     Route: 048
     Dates: start: 20061220, end: 20061221
  3. LORAZEPAM [Concomitant]
  4. DIGOXIN [Concomitant]
  5. DILTIAZEM [Concomitant]
  6. WARFARIN SODIUM [Concomitant]
  7. GLYBURIDE [Concomitant]

REACTIONS (1)
  - INSOMNIA [None]
